FAERS Safety Report 5787342-2 (Version None)
Quarter: 2008Q2

REPORT INFORMATION
  Report Type: 
  Country: None (occurrence: None)
  Receive Date: 20080625
  Receipt Date: 20080617
  Transmission Date: 20081010
  Serious: Yes (Hospitalization)
  Sender: FDA-Public Use
  Company Number: US-AMGEN-US287971

PATIENT
  Sex: Female

DRUGS (5)
  1. EPOGEN [Suspect]
     Indication: RENAL FAILURE CHRONIC
     Dates: start: 20070701
  2. CALCIUM CARBONATE [Concomitant]
  3. VITAMIN CAP [Concomitant]
  4. ENALAPRIL MALEATE [Concomitant]
  5. IRON [Concomitant]

REACTIONS (1)
  - HAEMOGLOBIN DECREASED [None]
